FAERS Safety Report 5816144-3 (Version None)
Quarter: 2008Q3

REPORT INFORMATION
  Report Type: 
  Country: None (occurrence: None)
  Receive Date: 20080721
  Receipt Date: 20080717
  Transmission Date: 20090109
  Serious: Yes (Hospitalization)
  Sender: FDA-Public Use
  Company Number: SE-JNJFOC-20080703721

PATIENT
  Age: 21 Year
  Sex: Male

DRUGS (2)
  1. DEXTROMETHORPHAN HBR [Suspect]
     Indication: DRUG USE FOR UNKNOWN INDICATION
     Route: 048
  2. N-BENZYLPIPERAZINE [Suspect]
     Indication: DRUG USE FOR UNKNOWN INDICATION

REACTIONS (13)
  - AGITATION [None]
  - ANXIETY [None]
  - CONFUSIONAL STATE [None]
  - DRUG ABUSE [None]
  - HYPERACUSIS [None]
  - HYPERHIDROSIS [None]
  - HYPERTENSION [None]
  - MULTIPLE DRUG OVERDOSE [None]
  - PHOTOPHOBIA [None]
  - PSYCHOTIC DISORDER [None]
  - SKIN WARM [None]
  - TACHYCARDIA [None]
  - TRISMUS [None]
